FAERS Safety Report 8366724-9 (Version None)
Quarter: 2012Q2

REPORT INFORMATION
  Report Type: 
  Country: None (occurrence: None)
  Receive Date: 20120517
  Receipt Date: 20120514
  Transmission Date: 20120825
  Serious: Yes (Other)
  Sender: FDA-Public Use
  Company Number: US-PFIZER INC-2012089626

PATIENT
  Age: 86 Year
  Sex: Male

DRUGS (3)
  1. ASPIRIN [Suspect]
     Dosage: UNK
  2. CELEBREX [Suspect]
     Indication: NECK PAIN
     Dosage: 200 MG, 1X/DAY
     Route: 048
     Dates: start: 20120207, end: 20120210
  3. PLAVIX [Concomitant]
     Dosage: UNK

REACTIONS (1)
  - GASTROINTESTINAL HAEMORRHAGE [None]
